FAERS Safety Report 8190282-5 (Version None)
Quarter: 2012Q1

REPORT INFORMATION
  Report Type: 
  Country: None (occurrence: None)
  Receive Date: 20120307
  Receipt Date: 20120222
  Transmission Date: 20120608
  Serious: Yes (Other)
  Sender: FDA-Public Use
  Company Number: IT-MYLANLABS-2012S1004398

PATIENT
  Age: 6 Decade
  Sex: Male

DRUGS (7)
  1. CYCLOPHOSPHAMIDE [Suspect]
     Indication: NON-HODGKIN'S LYMPHOMA STAGE II
     Dosage: MACOP-B REGIMEN, 6 CYCLES
     Route: 065
  2. DOXORUBICIN HCL [Suspect]
     Indication: NON-HODGKIN'S LYMPHOMA STAGE II
     Dosage: MACOP-B REGIMEN, 6 CYCLES
     Route: 065
  3. VINCRISTINE [Suspect]
     Indication: NON-HODGKIN'S LYMPHOMA STAGE II
     Dosage: MACOP-B REGIMEN, 6 CYCLES
     Route: 065
  4. METHOTREXATE [Suspect]
     Indication: NON-HODGKIN'S LYMPHOMA STAGE II
     Dosage: MACOP-B REGIMEN, 6 CYCLES
     Route: 065
  5. LEUCOVORIN CALCIUM [Suspect]
     Indication: NON-HODGKIN'S LYMPHOMA STAGE II
     Dosage: MACOP-B REGIMEN, 6 CYCLES
     Route: 065
  6. PREDNISONE TAB [Suspect]
     Indication: NON-HODGKIN'S LYMPHOMA STAGE II
     Dosage: MACOP-B REGIMEN, 6 CYCLES
     Route: 065
  7. BLEOMYCIN SULFATE [Suspect]
     Indication: NON-HODGKIN'S LYMPHOMA STAGE II
     Dosage: MACOP-B REGIMEN, 6 CYCLES
     Route: 065

REACTIONS (4)
  - MYELODYSPLASTIC SYNDROME [None]
  - LEUKOPENIA [None]
  - ANAEMIA [None]
  - THROMBOCYTOPENIA [None]
